FAERS Safety Report 22707823 (Version 2)
Quarter: 2025Q3

REPORT INFORMATION
  Report Type: Report from Study
  Country: EU (occurrence: EU)
  Receive Date: 20230714
  Receipt Date: 20250901
  Transmission Date: 20251021
  Serious: Yes (Life-Threatening, Other)
  Sender: TEVA
  Company Number: EU-ROCHE-313090

PATIENT
  Age: 86 Year
  Sex: Female
  Weight: 56 kg

DRUGS (35)
  1. ASPIRIN [Suspect]
     Active Substance: ASPIRIN
     Indication: Coagulopathy
     Dosage: ASPIRIN
     Route: 048
     Dates: start: 20000828, end: 20000831
  2. ASPIRIN [Suspect]
     Active Substance: ASPIRIN
     Indication: Coagulopathy
     Route: 048
     Dates: start: 20000914, end: 20000917
  3. OMEPRAZOLE [Suspect]
     Active Substance: OMEPRAZOLE
     Indication: Prophylaxis against gastrointestinal ulcer
     Route: 048
     Dates: start: 20000820, end: 20000917
  4. PLAVIX [Suspect]
     Active Substance: CLOPIDOGREL BISULFATE
     Indication: Thrombosis prophylaxis
     Route: 048
     Dates: start: 20000913, end: 20000917
  5. PLAVIX [Suspect]
     Active Substance: CLOPIDOGREL BISULFATE
     Indication: Thrombosis prophylaxis
     Route: 065
  6. VIOXX [Suspect]
     Active Substance: ROFECOXIB
     Indication: Rheumatic disorder
     Route: 048
     Dates: start: 20000907, end: 20000917
  7. XYLOCAINE [Suspect]
     Active Substance: LIDOCAINE HYDROCHLORIDE
     Indication: Local anaesthesia
     Route: 058
     Dates: start: 20000913, end: 20000913
  8. CALCIUM [Concomitant]
     Active Substance: CALCIUM
     Indication: Osteoporosis
     Route: 048
     Dates: start: 20000820, end: 20000917
  9. CALCIUM CHLORIDE [Concomitant]
     Active Substance: CALCIUM CHLORIDE
     Indication: Fluid retention
     Route: 042
     Dates: start: 20000913, end: 20000914
  10. CALCIUM CHLORIDE [Concomitant]
     Active Substance: CALCIUM CHLORIDE
     Indication: Fluid retention
     Route: 065
  11. COTRIM [Concomitant]
     Active Substance: SULFAMETHOXAZOLE\TRIMETHOPRIM
     Indication: Urinary tract infection
     Route: 048
     Dates: start: 20000916, end: 20000917
  12. FENTANYL [Concomitant]
     Active Substance: FENTANYL
     Indication: Pain
     Dosage: 125 MICROGRAM, QH, MICROGRAMS PER INHALATION
     Route: 062
  13. FENTANYL [Concomitant]
     Active Substance: FENTANYL
     Indication: Pain
     Dosage: 150 MCG, QH, MICROGRAMS PER INHALATION, 72 QH
     Route: 062
  14. FENTANYL [Concomitant]
     Active Substance: FENTANYL
     Indication: Pain
     Dosage: 50 MCG, QH, MICROGRAMS PER INHALATION, 72 QH
     Route: 062
  15. FENTANYL [Concomitant]
     Active Substance: FENTANYL
     Indication: Pain
     Route: 062
     Dates: start: 20000820, end: 20000916
  16. DEXTROSE [Concomitant]
     Active Substance: DEXTROSE MONOHYDRATE
     Indication: Cardiovascular disorder
     Route: 065
  17. DEXTROSE [Concomitant]
     Active Substance: DEXTROSE MONOHYDRATE
     Indication: Cardiovascular disorder
     Route: 042
     Dates: start: 20000913, end: 20000913
  18. INSULIN NOS [Concomitant]
     Active Substance: INSULIN NOS
     Indication: Diabetes mellitus
     Route: 058
     Dates: start: 20000820, end: 20000917
  19. INSULIN NOS [Concomitant]
     Active Substance: INSULIN NOS
     Indication: Diabetes mellitus
     Route: 042
     Dates: start: 20000913, end: 20000913
  20. ISOSORBIDE MONONITRATE [Concomitant]
     Active Substance: ISOSORBIDE MONONITRATE
     Indication: Angina pectoris
     Route: 048
     Dates: start: 20000820, end: 20000917
  21. OMEPRAZOLE MAGNESIUM [Concomitant]
     Active Substance: OMEPRAZOLE MAGNESIUM
     Indication: Prophylaxis against gastrointestinal ulcer
     Route: 048
     Dates: start: 20000820, end: 20000917
  22. ESTRIOL [Concomitant]
     Active Substance: ESTRIOL
     Indication: Vulvovaginal disorder
     Route: 067
     Dates: start: 20000820, end: 20000906
  23. POTASSIUM CHLORIDE [Concomitant]
     Active Substance: POTASSIUM CHLORIDE
     Indication: Fluid retention
     Route: 065
  24. POTASSIUM CHLORIDE [Concomitant]
     Active Substance: POTASSIUM CHLORIDE
     Indication: Fluid retention
     Route: 042
     Dates: start: 20000913, end: 20000914
  25. CLEMASTINE FUMARATE [Concomitant]
     Active Substance: CLEMASTINE FUMARATE
     Indication: Pemphigoid
     Route: 048
     Dates: start: 20000820, end: 20000828
  26. CLEMASTINE FUMARATE [Concomitant]
     Active Substance: CLEMASTINE FUMARATE
     Indication: Pemphigoid
     Route: 048
     Dates: start: 20000820, end: 20000828
  27. TORSEMIDE [Concomitant]
     Active Substance: TORSEMIDE
     Indication: Cardiac failure
     Route: 048
     Dates: start: 20000820, end: 20000917
  28. CLONIDINE HYDROCHLORIDE [Suspect]
     Active Substance: CLONIDINE HYDROCHLORIDE
     Indication: Coronary artery disease
     Route: 065
  29. CLONIDINE HYDROCHLORIDE [Suspect]
     Active Substance: CLONIDINE HYDROCHLORIDE
     Indication: Coronary artery disease
     Route: 042
     Dates: start: 20000913, end: 20000913
  30. DIAZEPAM [Suspect]
     Active Substance: DIAZEPAM
     Indication: Sedative therapy
     Route: 042
     Dates: start: 20000913, end: 20000913
  31. GLYBURIDE [Suspect]
     Active Substance: GLYBURIDE
     Indication: Diabetes mellitus
     Route: 048
     Dates: start: 20000820, end: 20000917
  32. NOREPINEPHRINE BITARTRATE [Suspect]
     Active Substance: NOREPINEPHRINE BITARTRATE
     Indication: Coronary artery disease
     Route: 042
     Dates: start: 20000913, end: 20000913
  33. MOLSIDOMINE [Suspect]
     Active Substance: MOLSIDOMINE
     Indication: Coronary artery disease
     Route: 048
     Dates: start: 20000820, end: 20000914
  34. LORMETAZEPAM [Suspect]
     Active Substance: LORMETAZEPAM
     Indication: Sedative therapy
     Dosage: 1 DOSE DAILY SUSPENSION AEROSOL
     Route: 048
     Dates: start: 20000913, end: 20000913
  35. NOVALGIN (METAMIZOLE SODIUM) [Suspect]
     Active Substance: METAMIZOLE SODIUM
     Indication: Pain
     Route: 048
     Dates: start: 20000820, end: 20000917

REACTIONS (6)
  - Conjunctivitis [Recovered/Resolved]
  - Mucosal erosion [Recovered/Resolved]
  - Mouth ulceration [Recovered/Resolved]
  - Blister [Recovered/Resolved]
  - Toxic epidermal necrolysis [Recovered/Resolved]
  - Erythema [Recovered/Resolved]

NARRATIVE: CASE EVENT DATE: 20000916
